FAERS Safety Report 12410066 (Version 3)
Quarter: 2018Q2

REPORT INFORMATION
  Report Type: Report from Study
  Country: GB (occurrence: GB)
  Receive Date: 20160527
  Receipt Date: 20180413
  Transmission Date: 20180711
  Serious: Yes (Hospitalization, Other)
  Sender: FDA-Public Use
  Company Number: GB-UCBSA-2016019185

PATIENT
  Sex: Male
  Weight: 70 kg

DRUGS (6)
  1. AMOXICILLIN. [Concomitant]
     Active Substance: AMOXICILLIN
     Indication: TOOTH ABSCESS
     Dosage: 250 MG, 3X/DAY (TID)
     Route: 048
     Dates: start: 20160429, end: 20160506
  2. CERTOLIZUMAB PEGOL [Suspect]
     Active Substance: CERTOLIZUMAB PEGOL
     Indication: ANKYLOSING SPONDYLITIS
     Dosage: 200 MG, EV 2 WEEKS(QOW)
     Route: 058
     Dates: start: 20160210, end: 20160420
  3. NAPROXEN. [Concomitant]
     Active Substance: NAPROXEN
     Indication: PAIN
     Dosage: 500 MG, 2X/DAY (BID)
     Route: 048
     Dates: start: 20151228
  4. GENTISONE HC [Concomitant]
     Indication: EAR INFECTION
     Dosage: 2-4 DROPS FOR 3-4 TIMES DAILY; TOPICAL INTO EAR
     Dates: start: 20160413, end: 20160420
  5. BRUFEN [Concomitant]
     Active Substance: IBUPROFEN
     Indication: TOOTHACHE
     Dosage: 400 MG, ONCE DAILY (QD)
     Route: 048
     Dates: start: 20160429
  6. NYSTATIN. [Concomitant]
     Active Substance: NYSTATIN
     Indication: CANDIDA INFECTION
     Dosage: UNK

REACTIONS (5)
  - Sinusitis [Recovered/Resolved]
  - Liver abscess [Not Recovered/Not Resolved]
  - Tooth abscess [Recovered/Resolved]
  - Sepsis [Not Recovered/Not Resolved]
  - Ear infection [Recovered/Resolved]

NARRATIVE: CASE EVENT DATE: 20160413
